FAERS Safety Report 10196158 (Version 1)
Quarter: 2014Q2

REPORT INFORMATION
  Report Type: Report from Study
  Country: JP (occurrence: JP)
  Receive Date: 20140527
  Receipt Date: 20140527
  Transmission Date: 20141212
  Serious: Yes (Disabling)
  Sender: FDA-Public Use
  Company Number: JP-PFIZER INC-2014143587

PATIENT
  Age: 83 Year
  Sex: Male

DRUGS (5)
  1. ESTRACYT [Suspect]
     Indication: PROSTATE CANCER
     Dosage: 626.8 MG, DAILY
     Route: 048
     Dates: start: 20120511, end: 20120726
  2. ESTRACYT [Suspect]
     Dosage: 313.4 MG, DAILY
     Route: 048
     Dates: start: 20120727, end: 20120920
  3. MUCOSTA [Concomitant]
     Dosage: UNK
     Dates: start: 20120511, end: 20120920
  4. LASIX [Concomitant]
     Dosage: UNK
     Dates: start: 20120601, end: 20120920
  5. ALDACTONE [Concomitant]
     Dosage: UNK
     Dates: start: 20120601, end: 20120920

REACTIONS (1)
  - Cerebral haemorrhage [Not Recovered/Not Resolved]
